FAERS Safety Report 17324297 (Version 1)
Quarter: 2020Q1

REPORT INFORMATION
  Report Type: Spontaneous
  Country: US (occurrence: US)
  Receive Date: 20200127
  Receipt Date: 20200127
  Transmission Date: 20200409
  Serious: No
  Sender: FDA-Public Use
  Company Number: US-BIOGEN-2018BI00586819

PATIENT
  Age: 42 Year
  Sex: Female

DRUGS (2)
  1. TECFIDERA [Suspect]
     Active Substance: DIMETHYL FUMARATE
     Indication: MULTIPLE SCLEROSIS
     Dosage: MAINTENANCE DOSE
     Route: 050
  2. TECFIDERA [Suspect]
     Active Substance: DIMETHYL FUMARATE
     Route: 065
     Dates: start: 20171017, end: 20180531

REACTIONS (13)
  - Oral pruritus [Unknown]
  - Rash pruritic [Unknown]
  - Erythema [Recovered/Resolved]
  - Tongue pruritus [Recovered/Resolved]
  - Tongue discomfort [Recovered/Resolved]
  - Nasal discomfort [Recovered/Resolved]
  - Urticaria [Unknown]
  - Nasal pruritus [Recovered/Resolved]
  - Throat irritation [Unknown]
  - Hypersensitivity [Unknown]
  - Oral discomfort [Unknown]
  - Flushing [Unknown]
  - Feeling hot [Recovered/Resolved]

NARRATIVE: CASE EVENT DATE: 20171017
